FAERS Safety Report 6699557-X (Version None)
Quarter: 2010Q2

REPORT INFORMATION
  Report Type: 
  Country: None (occurrence: None)
  Receive Date: 20100427
  Receipt Date: 20100427
  Transmission Date: 20101027
  Serious: Yes (Hospitalization)
  Sender: FDA-Public Use
  Company Number: None

PATIENT
  Sex: Male

DRUGS (9)
  1. BEXXAR [Suspect]
     Indication: MULTIPLE MYELOMA
     Dosage: UNAVAILABLE AT THIS TIME IV
     Route: 042
     Dates: start: 20100406
  2. TOSITUMOMAB [Suspect]
     Dosage: 65 CGY IV
     Route: 042
  3. VICODIN [Concomitant]
  4. OXYCONTIN [Concomitant]
  5. VALTREX [Concomitant]
  6. FOLIC ACID [Concomitant]
  7. ALPHA LIPOIC ACID [Concomitant]
  8. ACETYL-L CARNITINE [Concomitant]
  9. SSKI [Concomitant]

REACTIONS (1)
  - FACIAL PALSY [None]
